FAERS Safety Report 22236790 (Version 1)
Quarter: 2023Q2

REPORT INFORMATION
  Report Type: Spontaneous
  Country: US (occurrence: US)
  Receive Date: 20230420
  Receipt Date: 20230420
  Transmission Date: 20230722
  Serious: No
  Sender: FDA-Public Use
  Company Number: US-ALLERGAN-2238449US

PATIENT
  Sex: Female
  Weight: 96.161 kg

DRUGS (3)
  1. RESTASIS [Suspect]
     Active Substance: CYCLOSPORINE
     Indication: Dry eye
     Dosage: 2 GTT, QD
     Route: 047
     Dates: start: 202211
  2. RESTASIS [Suspect]
     Active Substance: CYCLOSPORINE
     Indication: Lacrimation decreased
     Dosage: 2 GTT, QD
     Route: 047
     Dates: start: 2015, end: 2015
  3. RESTASIS [Suspect]
     Active Substance: CYCLOSPORINE
     Dosage: 2 GTT, QD
     Route: 047
     Dates: start: 2012, end: 2012

REACTIONS (6)
  - Dry eye [Not Recovered/Not Resolved]
  - Corneal disorder [Not Recovered/Not Resolved]
  - Eye injury [Not Recovered/Not Resolved]
  - Photophobia [Not Recovered/Not Resolved]
  - Eye pain [Not Recovered/Not Resolved]
  - Eye irritation [Recovered/Resolved]

NARRATIVE: CASE EVENT DATE: 20120101
